FAERS Safety Report 24023416 (Version 1)
Quarter: 2024Q2

REPORT INFORMATION
  Report Type: Report from Study
  Country: IN (occurrence: IN)
  Receive Date: 20240627
  Receipt Date: 20240627
  Transmission Date: 20240716
  Serious: No
  Sender: FDA-Public Use
  Company Number: IN-ROCHE-3358881

PATIENT
  Age: 44 Year
  Sex: Female

DRUGS (1)
  1. PHESGO [Suspect]
     Active Substance: HYALURONIDASE-ZZXF\PERTUZUMAB\TRASTUZUMAB
     Indication: Metastatic neoplasm
     Route: 058
     Dates: start: 20220729

REACTIONS (4)
  - Peripheral swelling [Unknown]
  - Headache [Unknown]
  - Hypertension [Unknown]
  - Disease progression [Unknown]
